FAERS Safety Report 4621443-7 (Version None)
Quarter: 2005Q1

REPORT INFORMATION
  Report Type: 
  Country: None (occurrence: None)
  Receive Date: 20050321
  Receipt Date: 20050303
  Transmission Date: 20050727
  Serious: Yes (Other)
  Sender: FDA-Public Use
  Company Number: 602029

PATIENT
  Sex: Male

DRUGS (10)
  1. HEMOFIL [Suspect]
     Indication: HAEMOPHILIA
  2. FACTOR IX COMPLEX [Suspect]
     Indication: HAEMOPHILIA
  3. FACTOR VIII BAYER [Suspect]
     Indication: HAEMOPHILIA
  4. FACTOR IX COMPLEX [Suspect]
     Indication: HAEMOPHILIA
  5. ANTIHEMOPHILIC FACTOR (HUMAN) [Suspect]
     Indication: HAEMOPHILIA
  6. FACTOR IX COMPLEX [Suspect]
     Indication: HAEMOPHILIA
  7. FACTOR VIII (AVENTIS) [Suspect]
     Indication: HAEMOPHILIA
  8. FACTOR IX COMPLEX [Suspect]
     Indication: HAEMOPHILIA
  9. FACTOR VIII (ALPHA) [Suspect]
     Indication: HAEMOPHILIA
  10. FACTOR IX COMPLEX [Suspect]
     Indication: HAEMOPHILIA

REACTIONS (11)
  - ACQUIRED IMMUNODEFICIENCY SYNDROME [None]
  - ANOREXIA [None]
  - CACHEXIA [None]
  - DIARRHOEA [None]
  - EYE INFECTION [None]
  - HEPATITIS C VIRUS [None]
  - HIV INFECTION [None]
  - HYPERHIDROSIS [None]
  - LOWER RESPIRATORY TRACT INFECTION [None]
  - NAUSEA [None]
  - PNEUMONIA [None]
